FAERS Safety Report 20408675 (Version 1)
Quarter: 2022Q1

REPORT INFORMATION
  Report Type: Spontaneous
  Country: US (occurrence: None)
  Receive Date: 20220201
  Receipt Date: 20220201
  Transmission Date: 20220423
  Serious: Yes (Other)
  Sender: FDA-Public Use
  Company Number: US-ROCHE-3009838

PATIENT
  Age: 41 Year
  Sex: Female
  Weight: 39 kg

DRUGS (4)
  1. ACTEMRA [Suspect]
     Active Substance: TOCILIZUMAB
     Indication: COVID-19
     Route: 042
     Dates: start: 20211229
  2. ACTEMRA [Suspect]
     Active Substance: TOCILIZUMAB
     Route: 042
     Dates: start: 20211231
  3. REMDESIVIR [Concomitant]
     Active Substance: REMDESIVIR
     Dates: start: 20211229, end: 20220102
  4. DEXAMETHASONE [Concomitant]
     Active Substance: DEXAMETHASONE
     Dates: start: 20211229, end: 20220108

REACTIONS (2)
  - Off label use [Unknown]
  - Hyperchlorhydria [Unknown]
